FAERS Safety Report 6417449-8 (Version None)
Quarter: 2009Q4

REPORT INFORMATION
  Report Type: 
  Country: None (occurrence: None)
  Receive Date: 20091027
  Receipt Date: 20091027
  Transmission Date: 20100525
  Serious: Yes (Hospitalization)
  Sender: FDA-Public Use
  Company Number: None

PATIENT
  Age: 68 Year
  Sex: Female
  Weight: 94.8018 kg

DRUGS (1)
  1. ULORIC [Suspect]
     Indication: BLOOD URIC ACID INCREASED
     Dosage: 1TAB DAILY PO
     Route: 048
     Dates: start: 20091017, end: 20091018

REACTIONS (2)
  - DRUG HYPERSENSITIVITY [None]
  - RASH [None]
